FAERS Safety Report 7767463-5 (Version None)
Quarter: 2011Q3

REPORT INFORMATION
  Report Type: 
  Country: None (occurrence: None)
  Receive Date: 20110922
  Receipt Date: 20110913
  Transmission Date: 20111222
  Serious: Yes (Death, Life-Threatening, Hospitalization)
  Sender: FDA-Public Use
  Company Number: US-MYLANLABS-2011S1014562

PATIENT
  Age: 77 Year
  Sex: Female

DRUGS (10)
  1. LIPITOR [Concomitant]
     Route: 048
  2. AMLODIPINE [Suspect]
     Route: 048
     Dates: start: 20091209
  3. LISINOPRIL [Concomitant]
     Route: 048
  4. NORMODYNE [Concomitant]
     Route: 048
  5. ASPIRIN [Concomitant]
     Route: 048
  6. ALLOPURINOL [Suspect]
     Indication: BLOOD URIC ACID
     Dates: start: 20091123
  7. ULORIC [Suspect]
     Indication: GOUT
     Dates: start: 20091228
  8. IBUPROFEN [Suspect]
  9. ZEMPLAR [Concomitant]
     Route: 048
  10. FUROSEMIDE [Concomitant]
     Route: 048

REACTIONS (3)
  - RESPIRATORY FAILURE [None]
  - RENAL FAILURE ACUTE [None]
  - TOXIC EPIDERMAL NECROLYSIS [None]
